FAERS Safety Report 8267395-2 (Version None)
Quarter: 2012Q2

REPORT INFORMATION
  Report Type: 
  Country: None (occurrence: None)
  Receive Date: 20120409
  Receipt Date: 20120328
  Transmission Date: 20120825
  Serious: Yes (Hospitalization)
  Sender: FDA-Public Use
  Company Number: PHHY2012BR026974

PATIENT
  Sex: Female
  Weight: 84 kg

DRUGS (4)
  1. EXELON [Suspect]
     Indication: DEMENTIA ALZHEIMER'S TYPE
     Dosage: 4.6 MG, (9MG/5CM2, 1 PATCH A DAY)
     Route: 062
     Dates: start: 20080101
  2. DONEPEZIL HCL [Concomitant]
     Indication: DEMENTIA ALZHEIMER'S TYPE
     Dosage: 1 DF, UNK
  3. EXELON [Suspect]
     Dosage: 13 MG, (27MG/15CM2, 1 PATCH A DAY)
     Route: 062
  4. EXELON [Suspect]
     Dosage: 9.5 MG, (18MG/10CM2, 1 PATCH A DAY)
     Route: 062

REACTIONS (8)
  - URINARY TRACT INFECTION [None]
  - FATIGUE [None]
  - INSOMNIA [None]
  - PRURITUS GENERALISED [None]
  - ESCHERICHIA URINARY TRACT INFECTION [None]
  - MUSCULOSKELETAL PAIN [None]
  - NERVOUSNESS [None]
  - TENDON DISORDER [None]
